FAERS Safety Report 4964357-5 (Version None)
Quarter: 2006Q1

REPORT INFORMATION
  Report Type: 
  Country: None (occurrence: None)
  Receive Date: 20060331
  Receipt Date: 20060321
  Transmission Date: 20060701
  Serious: No
  Sender: FDA-Public Use
  Company Number: 06H-087-0306824-00

PATIENT

DRUGS (7)
  1. ETOPOSIDE [Suspect]
     Indication: CHEMOTHERAPY
     Dosage: 100 MG/M2, DAYS 43-45, INTRAVENOUS
     Route: 042
  2. VINCRISTINE [Suspect]
     Indication: CHEMOTHERAPY
     Dosage: 1 MG/M2, DAYS 1, 8, 15, 22, INTRAVENOUS
     Route: 042
  3. CYCLOPHOSPHAMIDE [Suspect]
     Indication: CHEMOTHERAPY
     Dosage: 350 MG/M2, DAYS 1, 8, 15, 22, INTRAVENOUS
     Route: 042
  4. DOXORUBUCIN (DOXORUBICIN) [Suspect]
     Indication: CHEMOTHERAPY
     Dosage: 40 MG/M2, DAYS 1, 22, INTRAVENOUS
     Route: 042
  5. PREDNISOLONE [Suspect]
     Indication: CHEMOTHERAPY
     Dosage: SEE IMAGE
     Route: 048
  6. VINDESINE (VINDESINE) [Suspect]
     Indication: CHEMOTHERAPY
     Dosage: 2.4 MG/M2, DAYS 43, 50, INTRAVENOUS
     Route: 042
  7. PROCARBAZINE (PROCARBAZINE) [Suspect]
     Indication: CHEMOTHERAPY
     Dosage: SEE IMAGE
     Route: 048

REACTIONS (2)
  - DRUG TOXICITY [None]
  - PNEUMONIA [None]
